FAERS Safety Report 5573990-1 (Version None)
Quarter: 2007Q4

REPORT INFORMATION
  Report Type: 
  Country: None (occurrence: None)
  Receive Date: 20071218
  Receipt Date: 20071205
  Transmission Date: 20080405
  Serious: Yes (Hospitalization)
  Sender: FDA-Public Use
  Company Number: 200712345

PATIENT
  Age: 34 Year
  Sex: Female
  Weight: 56.6996 kg

DRUGS (30)
  1. VIVAGLOBIN [Suspect]
     Indication: IMMUNODEFICIENCY COMMON VARIABLE
     Dosage: SC
     Route: 058
     Dates: start: 20071022, end: 20071023
  2. VIVAGLOBIN [Suspect]
     Indication: IMMUNODEFICIENCY COMMON VARIABLE
     Dosage: SC
     Route: 058
     Dates: start: 20071022, end: 20071023
  3. VIVAGLOBIN [Suspect]
     Indication: IMMUNODEFICIENCY COMMON VARIABLE
     Dosage: SC
     Route: 058
     Dates: start: 20070201
  4. VIVAGLOBIN [Suspect]
  5. ADVAIR DISKUS 100/50 [Concomitant]
  6. ASTELIN [Concomitant]
  7. CLARINEX [Concomitant]
  8. COMBIVENT [Concomitant]
  9. DUONEB [Concomitant]
  10. EPIPEN [Concomitant]
  11. MAXAIR [Concomitant]
  12. MYCELEX [Concomitant]
  13. PREDNISONE [Concomitant]
  14. PRILOSEC [Concomitant]
  15. RELPAX [Concomitant]
  16. ZOMIG [Concomitant]
  17. SINGULAIR [Concomitant]
  18. SPIRIVA [Concomitant]
  19. XOPENEX [Concomitant]
  20. ACIDOPHILUS [Concomitant]
  21. ADVIL LIQUI-GELS [Concomitant]
  22. BENADRYL [Concomitant]
  23. CALCIUM [Concomitant]
  24. EXCEDRIN (MIGRAINE) [Concomitant]
  25. POTASSIUM [Concomitant]
  26. M.V.I. [Concomitant]
  27. ASCORBIC ACID [Concomitant]
  28. FOSAMAX [Concomitant]
  29. IMMUNOTHERAPY ALLERGY INJECTIONS [Concomitant]
  30. YASMIN [Concomitant]

REACTIONS (5)
  - INJECTION SITE ERYTHEMA [None]
  - INJECTION SITE PAIN [None]
  - MEDICAL DEVICE COMPLICATION [None]
  - OEDEMA PERIPHERAL [None]
  - PAIN [None]
